FAERS Safety Report 25189198 (Version 1)
Quarter: 2025Q2

REPORT INFORMATION
  Report Type: Spontaneous
  Country: US (occurrence: US)
  Receive Date: 20250411
  Receipt Date: 20250411
  Transmission Date: 20250717
  Serious: Yes (Hospitalization, Other)
  Sender: RANBAXY
  Company Number: US-SUN PHARMACEUTICAL INDUSTRIES LTD-2025R1-502714

PATIENT
  Sex: Male

DRUGS (7)
  1. ABIRATERONE [Suspect]
     Active Substance: ABIRATERONE
     Indication: Product used for unknown indication
     Route: 065
  2. ORGOVYX [Suspect]
     Active Substance: RELUGOLIX
     Indication: Prostate cancer
     Route: 048
     Dates: start: 20220519, end: 20220519
  3. ORGOVYX [Suspect]
     Active Substance: RELUGOLIX
     Dosage: 120 MILLIGRAM, DAILY
     Route: 048
     Dates: start: 20220520
  4. ORGOVYX [Suspect]
     Active Substance: RELUGOLIX
     Route: 048
  5. ORGOVYX [Suspect]
     Active Substance: RELUGOLIX
     Dosage: 120 MILLIGRAM, QD
     Route: 048
     Dates: start: 20220520
  6. XTANDI [Suspect]
     Active Substance: ENZALUTAMIDE
     Indication: Prostate cancer
     Route: 065
  7. NUBEQA [Suspect]
     Active Substance: DAROLUTAMIDE
     Indication: Product used for unknown indication
     Route: 065

REACTIONS (12)
  - Blood potassium decreased [Unknown]
  - Arrhythmia [Unknown]
  - Constipation [Unknown]
  - Asthenia [Unknown]
  - Balance disorder [Unknown]
  - Blood cholesterol increased [Unknown]
  - Confusional state [Unknown]
  - Dyspnoea [Unknown]
  - Fall [Unknown]
  - Insomnia [Unknown]
  - Musculoskeletal discomfort [Unknown]
  - Prostatic specific antigen increased [Unknown]
